FAERS Safety Report 6217003-7 (Version None)
Quarter: 2009Q2

REPORT INFORMATION
  Report Type: 
  Country: None (occurrence: None)
  Receive Date: 20090604
  Receipt Date: 20090520
  Transmission Date: 20091009
  Serious: Yes (Death)
  Sender: FDA-Public Use
  Company Number: 000904

PATIENT
  Sex: Male
  Weight: 120 kg

DRUGS (11)
  1. NEUPRO [Suspect]
     Indication: PARKINSON'S DISEASE
     Dosage: 6 MG, 1/2 TRANSDERMAL), (6 MG QD TRANSDERMAL), (8 MG QD)
     Route: 062
     Dates: start: 20061127, end: 20061210
  2. NEUPRO [Suspect]
     Indication: PARKINSON'S DISEASE
     Dosage: 6 MG, 1/2 TRANSDERMAL), (6 MG QD TRANSDERMAL), (8 MG QD)
     Route: 062
     Dates: start: 20061211, end: 20081111
  3. NEUPRO [Suspect]
     Indication: PARKINSON'S DISEASE
     Dosage: 6 MG, 1/2 TRANSDERMAL), (6 MG QD TRANSDERMAL), (8 MG QD)
     Route: 062
     Dates: start: 20081112, end: 20081126
  4. PK-LEVO [Concomitant]
  5. AMLODIPINE [Concomitant]
  6. RAMIPRIL [Concomitant]
  7. TORSEMIDE [Concomitant]
  8. HYDROCHLOROTHIAZIDE [Concomitant]
  9. MARCUMAR [Concomitant]
  10. AZILECT [Concomitant]
  11. STALEVO 100 [Concomitant]

REACTIONS (2)
  - HYPERTHYROIDISM [None]
  - MULTI-ORGAN DISORDER [None]
